FAERS Safety Report 5352965-1 (Version None)
Quarter: 2007Q2

REPORT INFORMATION
  Report Type: 
  Country: None (occurrence: None)
  Receive Date: 20070611
  Receipt Date: 20070530
  Transmission Date: 20071010
  Serious: Yes (Death, Hospitalization)
  Sender: FDA-Public Use
  Company Number: PFIZER INC-2007042784

PATIENT
  Age: 65 Year
  Sex: Male
  Weight: 98 kg

DRUGS (8)
  1. SUTENT [Suspect]
     Indication: ADENOCARCINOMA PANCREAS
     Route: 048
     Dates: start: 20070502, end: 20070516
  2. FENTANYL [Concomitant]
  3. LISINOPRIL [Concomitant]
  4. LOVENOX [Concomitant]
  5. NEXIUM [Concomitant]
  6. OXYCODONE HCL [Concomitant]
  7. REGLAN [Concomitant]
  8. WELLBUTRIN [Concomitant]

REACTIONS (1)
  - DYSPNOEA [None]
